FAERS Safety Report 12184712 (Version 1)
Quarter: 2016Q1

REPORT INFORMATION
  Report Type: Spontaneous
  Country: FR (occurrence: FR)
  Receive Date: 20160316
  Receipt Date: 20160316
  Transmission Date: 20160526
  Serious: Yes (Other)
  Sender: FDA-Public Use
  Company Number: FR-JNJFOC-20160307416

PATIENT
  Age: 10 Year
  Sex: Male
  Weight: 36 kg

DRUGS (5)
  1. TERCIAN [Suspect]
     Active Substance: CYAMEMAZINE
     Indication: PSYCHOMOTOR HYPERACTIVITY
     Route: 048
  2. RISPERDAL [Suspect]
     Active Substance: RISPERIDONE
     Indication: PSYCHOMOTOR HYPERACTIVITY
     Dosage: 0.5 - 0 - 0.5
     Route: 048
     Dates: start: 201502
  3. CONCERTA [Suspect]
     Active Substance: METHYLPHENIDATE HYDROCHLORIDE
     Indication: PRODUCT USED FOR UNKNOWN INDICATION
     Route: 065
     Dates: start: 20151015
  4. RISPERDAL [Suspect]
     Active Substance: RISPERIDONE
     Indication: PSYCHOMOTOR HYPERACTIVITY
     Dosage: EVENING INTAKE SUPPRESSED
     Route: 048
  5. TERCIAN [Suspect]
     Active Substance: CYAMEMAZINE
     Indication: PSYCHOMOTOR HYPERACTIVITY
     Dosage: 10 - 5 - 10
     Route: 048
     Dates: start: 20151016

REACTIONS (4)
  - Product use issue [Unknown]
  - Atrioventricular block first degree [Recovered/Resolved]
  - Electrocardiogram PR prolongation [Recovered/Resolved]
  - Off label use [Unknown]

NARRATIVE: CASE EVENT DATE: 201502
